FAERS Safety Report 11934240 (Version 4)
Quarter: 2016Q3

REPORT INFORMATION
  Report Type: Report from Study
  Country: DE (occurrence: DE)
  Receive Date: 20160121
  Receipt Date: 20160812
  Transmission Date: 20161109
  Serious: Yes (Death, Hospitalization)
  Sender: FDA-Public Use
  Company Number: DE-ABBVIE-16K-062-1541049-00

PATIENT
  Age: 82 Year
  Sex: Female

DRUGS (2)
  1. HUMIRA [Suspect]
     Active Substance: ADALIMUMAB
     Indication: RHEUMATOID ARTHRITIS
     Route: 058
     Dates: start: 20111020, end: 20141016
  2. MTX [Concomitant]
     Active Substance: METHOTREXATE SODIUM
     Indication: PRODUCT USED FOR UNKNOWN INDICATION
     Dates: start: 201110, end: 2015

REACTIONS (6)
  - Pulmonary embolism [Fatal]
  - Deep vein thrombosis [Fatal]
  - Keratitis [Recovering/Resolving]
  - Sepsis [Recovering/Resolving]
  - Cataract [Recovering/Resolving]
  - Eye ulcer [Recovering/Resolving]

NARRATIVE: CASE EVENT DATE: 201506
